FAERS Safety Report 8849902 (Version 1)
Quarter: 2012Q4

REPORT INFORMATION
  Report Type: Report from Study
  Country: FR (occurrence: FR)
  Receive Date: 20121019
  Receipt Date: 20121019
  Transmission Date: 20130627
  Serious: Yes (Hospitalization)
  Sender: FDA-Public Use
  Company Number: FR-ROCHE-1144541

PATIENT
  Age: 57 Year
  Sex: Female

DRUGS (5)
  1. BEVACIZUMAB [Suspect]
     Indication: BREAST CANCER
     Route: 042
  2. UNSPECIFIED INGREDIENT [Suspect]
     Indication: BREAST CANCER
     Route: 042
     Dates: start: 20110704
  3. FLUOROURACIL [Suspect]
     Indication: BREAST CANCER
     Route: 042
     Dates: start: 20110704
  4. ENDOXAN [Suspect]
     Indication: BREAST CANCER
     Route: 042
     Dates: start: 20110704
  5. TAXOTERE [Suspect]
     Indication: BREAST CANCER
     Route: 042
     Dates: start: 20110927

REACTIONS (2)
  - Febrile bone marrow aplasia [Recovering/Resolving]
  - Anaemia [Recovering/Resolving]
